FAERS Safety Report 10266189 (Version 1)
Quarter: 2014Q2

REPORT INFORMATION
  Report Type: Spontaneous
  Country: IE (occurrence: IE)
  Receive Date: 20140627
  Receipt Date: 20140627
  Transmission Date: 20141212
  Serious: Yes (Death)
  Sender: FDA-Public Use
  Company Number: IE-009507513-1406IRL010619

PATIENT
  Age: 64 Year
  Sex: Female

DRUGS (5)
  1. INTRONA [Suspect]
     Indication: MELANOMA RECURRENT
     Dosage: 18 MILLION IU, (MON, WED, FRI)
     Dates: start: 20121031
  2. PANADOL [Concomitant]
     Dosage: UNK
  3. VENTOLIN (ALBUTEROL) [Concomitant]
     Dosage: UNK
  4. SERETIDE [Concomitant]
     Dosage: UNK
  5. ROSUVASTATIN CALCIUM [Concomitant]
     Dosage: UNK

REACTIONS (1)
  - Death [Fatal]
